FAERS Safety Report 15124990 (Version 1)
Quarter: 2018Q3

REPORT INFORMATION
  Report Type: Spontaneous
  Country: EG (occurrence: EG)
  Receive Date: 20180614
  Receipt Date: 20180614
  Transmission Date: 20181010
  Serious: Yes (Disabling)
  Sender: FDA-Public Use
  Company Number: None

PATIENT
  Age: 38 Year
  Sex: Female
  Weight: 51 kg

DRUGS (7)
  1. CIPROBAY 500 [Suspect]
     Active Substance: CIPROFLOXACIN
     Indication: GIARDIASIS
     Dosage: ?          QUANTITY:1 DF DOSAGE FORM;?
     Route: 048
  2. OMEGA PLUS [Concomitant]
  3. STUGERON [Concomitant]
     Active Substance: CINNARIZINE
  4. GUNKO BILOBA [Concomitant]
  5. CELENIUM ACE [Concomitant]
  6. MAGNESIUM [Concomitant]
     Active Substance: MAGNESIUM
  7. VITAMIN D [Concomitant]
     Active Substance: CHOLECALCIFEROL

REACTIONS (4)
  - Tinnitus [None]
  - Ear discomfort [None]
  - Nightmare [None]
  - Ear pain [None]

NARRATIVE: CASE EVENT DATE: 20180601
